FAERS Safety Report 5718296-2 (Version None)
Quarter: 2008Q2

REPORT INFORMATION
  Report Type: 
  Country: None (occurrence: None)
  Receive Date: 20080425
  Receipt Date: 20080218
  Transmission Date: 20081010
  Serious: No
  Sender: FDA-Public Use
  Company Number: US-ASTRAZENECA-2008UW00333

PATIENT
  Age: 43 Year
  Sex: Male
  Weight: 86.2 kg

DRUGS (2)
  1. ZOMIG [Suspect]
     Indication: MIGRAINE
     Route: 048
  2. ZOMIG [Suspect]
     Indication: HEADACHE
     Route: 048

REACTIONS (1)
  - INCISION SITE COMPLICATION [None]
